FAERS Safety Report 9900284 (Version 2)
Quarter: 2014Q1

REPORT INFORMATION
  Report Type: Spontaneous
  Country: BR (occurrence: BR)
  Receive Date: 20140215
  Receipt Date: 20140220
  Transmission Date: 20141002
  Serious: Yes (Hospitalization)
  Sender: FDA-Public Use
  Company Number: BR-ASTRAZENECA-2014SE09822

PATIENT
  Age: 590 Month
  Sex: Male
  Weight: 77 kg

DRUGS (3)
  1. CRESTOR [Suspect]
     Indication: BLOOD CHOLESTEROL ABNORMAL
     Route: 048
     Dates: start: 201307
  2. GLIFAGE [Suspect]
     Indication: DIABETES MELLITUS
     Dosage: DAILY
     Route: 048
     Dates: start: 2012
  3. GALVUS [Concomitant]
     Indication: DIABETES MELLITUS
     Dosage: DAILY
     Route: 048
     Dates: start: 2012

REACTIONS (2)
  - Myocardial infarction [Recovered/Resolved]
  - Blood cholesterol abnormal [Unknown]
